FAERS Safety Report 5290721-3 (Version None)
Quarter: 2007Q2

REPORT INFORMATION
  Report Type: 
  Country: None (occurrence: None)
  Receive Date: 20070409
  Receipt Date: 20070329
  Transmission Date: 20071010
  Serious: Yes (Other)
  Sender: FDA-Public Use
  Company Number: HQWYE176230MAR07

PATIENT
  Sex: Female

DRUGS (5)
  1. PREMARIN [Suspect]
     Indication: MENOPAUSE
     Route: 048
     Dates: start: 20000101
  2. PREMARIN [Suspect]
     Dosage: 0.3MG
     Route: 048
     Dates: start: 20050101, end: 20050101
  3. PREMARIN [Suspect]
     Dosage: 0.625MG
     Route: 048
     Dates: start: 20050101
  4. PREMARIN [Suspect]
     Dosage: .9MG
     Route: 048
     Dates: start: 20050101
  5. PROGESTERONE [Suspect]

REACTIONS (7)
  - ANGER [None]
  - ANXIETY [None]
  - BLOOD PRESSURE INCREASED [None]
  - DIZZINESS [None]
  - DRUG INEFFECTIVE [None]
  - HOMICIDAL IDEATION [None]
  - LIMITED SYMPTOM PANIC ATTACK [None]
